FAERS Safety Report 15728719 (Version 1)
Quarter: 2018Q4

REPORT INFORMATION
  Report Type: Other
  Country: SG (occurrence: SG)
  Receive Date: 20181217
  Receipt Date: 20181217
  Transmission Date: 20190205
  Serious: Yes (Hospitalization)
  Sender: FDA-Public Use
  Company Number: SG-P+ L DEVELOPMENTS OF NEWYORK CORPORATION-2060229

PATIENT
  Age: 15 Year

DRUGS (7)
  1. CEPHALEXIN. [Suspect]
     Active Substance: CEPHALEXIN
     Route: 065
  2. MAXOLON [Suspect]
     Active Substance: METOCLOPRAMIDE HYDROCHLORIDE
     Route: 065
  3. VENTOLIN [Suspect]
     Active Substance: ALBUTEROL SULFATE
     Route: 065
  4. LORATADINE. [Suspect]
     Active Substance: LORATADINE
     Indication: PRODUCT USED FOR UNKNOWN INDICATION
     Route: 065
  5. ANAREX (ORPHENADRINE CITRATE AND PARACETAMOL) [Suspect]
     Active Substance: ACETAMINOPHEN\ORPHENADRINE CITRATE
     Route: 065
  6. CIMETIDINE [Suspect]
     Active Substance: CIMETIDINE
     Route: 065
  7. BUSCOPAN (HYOSCINE BUTYLBROMIDE) (HYOSCINE BUTYLBROMIDE) [Suspect]
     Active Substance: BUTYLSCOPOLAMINE
     Route: 065

REACTIONS (5)
  - Somnolence [Unknown]
  - Metabolic acidosis [Unknown]
  - Toxicity to various agents [Unknown]
  - Intentional overdose [Unknown]
  - Hypokalaemia [Unknown]
